FAERS Safety Report 7659522-2 (Version None)
Quarter: 2011Q3

REPORT INFORMATION
  Report Type: 
  Country: None (occurrence: None)
  Receive Date: 20110804
  Receipt Date: 20110804
  Transmission Date: 20111222
  Serious: Yes (Disabling)
  Sender: FDA-Public Use
  Company Number: None

PATIENT
  Sex: Male

DRUGS (1)
  1. PRILOSEC [Suspect]
     Dosage: 20 MG ONCE DAILY ORAL
     Route: 048
     Dates: start: 19980101

REACTIONS (3)
  - DYSPEPSIA [None]
  - DECREASED APPETITE [None]
  - WEIGHT DECREASED [None]
